FAERS Safety Report 18842549 (Version 1)
Quarter: 2021Q1

REPORT INFORMATION
  Report Type: Spontaneous
  Country: US (occurrence: US)
  Receive Date: 20210203
  Receipt Date: 20210203
  Transmission Date: 20210419
  Serious: No
  Sender: FDA-Public Use
  Company Number: US-GALDERMA-US2020044252

PATIENT
  Age: 70 Year
  Sex: Male

DRUGS (4)
  1. SOLODYN [Concomitant]
     Active Substance: MINOCYCLINE HYDROCHLORIDE
     Indication: ROSACEA
     Dosage: 105 MG
     Route: 065
     Dates: start: 2013, end: 20200818
  2. ORACEA [Suspect]
     Active Substance: DOXYCYCLINE
     Indication: ROSACEA
     Dosage: 40 MG
     Route: 048
     Dates: start: 20200904
  3. SOOLANTRA [Suspect]
     Active Substance: IVERMECTIN
     Indication: ROSACEA
     Dosage: 1%
     Route: 061
     Dates: start: 2013
  4. FINACEA [Concomitant]
     Active Substance: AZELAIC ACID
     Indication: ROSACEA
     Route: 065
     Dates: start: 2013

REACTIONS (4)
  - Erythema [Not Recovered/Not Resolved]
  - Intentional product use issue [Recovered/Resolved]
  - Skin hyperpigmentation [Unknown]
  - Rosacea [Recovered/Resolved]

NARRATIVE: CASE EVENT DATE: 2013
